FAERS Safety Report 5581934-1 (Version None)
Quarter: 2008Q1

REPORT INFORMATION
  Report Type: 
  Country: None (occurrence: None)
  Receive Date: 20080104
  Receipt Date: 20080102
  Transmission Date: 20080703
  Serious: Yes (Other)
  Sender: FDA-Public Use
  Company Number: A0701016A

PATIENT
  Age: 47 Year
  Sex: Male

DRUGS (6)
  1. PAXIL [Suspect]
     Indication: DEPRESSION
     Dosage: 5MG PER DAY
     Route: 048
     Dates: start: 19990101, end: 20020101
  2. WELLBUTRIN XL [Suspect]
     Indication: DEPRESSION
     Dosage: 150MG PER DAY
     Route: 048
     Dates: start: 20071217
  3. VICODIN [Concomitant]
  4. ASPIRIN [Concomitant]
  5. ALEVE [Concomitant]
  6. XANAX [Concomitant]

REACTIONS (5)
  - DIABETES MELLITUS [None]
  - INTERVERTEBRAL DISC PROTRUSION [None]
  - METABOLIC SYNDROME [None]
  - SEDATION [None]
  - WEIGHT INCREASED [None]
